FAERS Safety Report 12100096 (Version 1)
Quarter: 2016Q1

REPORT INFORMATION
  Report Type: Report from Study
  Country: US (occurrence: US)
  Receive Date: 20160222
  Receipt Date: 20160222
  Transmission Date: 20160526
  Serious: Yes (Other)
  Sender: FDA-Public Use
  Company Number: US-JNJFOC-20150500309

PATIENT
  Age: 58 Year
  Sex: Male
  Weight: 81.65 kg

DRUGS (3)
  1. COLAZAL [Concomitant]
     Active Substance: BALSALAZIDE DISODIUM
     Indication: COLITIS
     Route: 065
     Dates: start: 20150123
  2. REMICADE [Suspect]
     Active Substance: INFLIXIMAB
     Indication: COLITIS ULCERATIVE
     Route: 042
     Dates: start: 201503
  3. REMICADE [Suspect]
     Active Substance: INFLIXIMAB
     Indication: COLITIS ULCERATIVE
     Route: 042
     Dates: start: 20150429

REACTIONS (14)
  - Dizziness [Unknown]
  - Nonspecific reaction [Unknown]
  - Flushing [Unknown]
  - Pruritus [Unknown]
  - Urticaria [Unknown]
  - Ocular hyperaemia [Not Recovered/Not Resolved]
  - Rash macular [Unknown]
  - Skin burning sensation [Unknown]
  - Pain [Unknown]
  - Drug ineffective [Unknown]
  - Exophthalmos [Unknown]
  - Infusion related reaction [Unknown]
  - Erythema [Unknown]
  - Rash [Unknown]

NARRATIVE: CASE EVENT DATE: 2015
